FAERS Safety Report 21033624 (Version 1)
Quarter: 2022Q3

REPORT INFORMATION
  Report Type: Spontaneous
  Country: FR (occurrence: FR)
  Receive Date: 20220701
  Receipt Date: 20220701
  Transmission Date: 20221026
  Serious: Yes (Hospitalization)
  Sender: FDA-Public Use
  Company Number: None

PATIENT
  Age: 64 Year
  Sex: Female
  Weight: 86 kg

DRUGS (4)
  1. CARBOPLATIN [Suspect]
     Active Substance: CARBOPLATIN
     Indication: Cervix carcinoma
     Dosage: UNIT DOSE: 316 MILLIGRAM, FREQUENCY TIME: 1 DAY, DURATION: 1 DAY
     Route: 041
     Dates: start: 20220504, end: 20220504
  2. CARBOPLATIN [Suspect]
     Active Substance: CARBOPLATIN
     Dosage: UNIT DOSE: 100 MILLIGRAM, FREQUENCY TIME: 1 DAY, DURATION: 1 DAY
     Route: 041
     Dates: start: 20220525, end: 20220525
  3. PACLITAXEL [Suspect]
     Active Substance: PACLITAXEL
     Indication: Cervix carcinoma
     Dosage: UNIT DOSE: 253 MILLIGRAM, FREQUENCY TIME: 1 DAY, DURATION: 1 DAY
     Route: 041
     Dates: start: 20220504, end: 20220504
  4. PACLITAXEL [Suspect]
     Active Substance: PACLITAXEL
     Dosage: UNIT DOSE: 253 MILLIGRAM, FREQUENCY TIME: 1 DAY, DURATION: 1 DAY
     Route: 041
     Dates: start: 20220525, end: 20220525

REACTIONS (2)
  - Anaemia [Recovering/Resolving]
  - Anaphylactic shock [Recovered/Resolved]

NARRATIVE: CASE EVENT DATE: 20220525
